FAERS Safety Report 16006870 (Version 1)
Quarter: 2019Q1

REPORT INFORMATION
  Report Type: Spontaneous
  Country: BR (occurrence: BR)
  Receive Date: 20190222
  Receipt Date: 20190222
  Transmission Date: 20190418
  Serious: Yes (Hospitalization)
  Sender: FDA-Public Use
  Company Number: BR-ASTRAZENECA-2019SE28994

PATIENT

DRUGS (7)
  1. FASENRA [Suspect]
     Active Substance: BENRALIZUMAB
     Indication: ASTHMA
     Route: 058
  2. MONTELUKAST [Concomitant]
     Active Substance: MONTELUKAST SODIUM
  3. CLENIL [Concomitant]
     Active Substance: BECLOMETHASONE DIPROPIONATE
  4. SPIRIVA [Concomitant]
     Active Substance: TIOTROPIUM BROMIDE MONOHYDRATE
  5. AEROLIN [Concomitant]
     Active Substance: ALBUTEROL
  6. ALENIA [Concomitant]
     Active Substance: BUDESONIDE\FORMOTEROL FUMARATE
  7. PREDNISONE. [Concomitant]
     Active Substance: PREDNISONE

REACTIONS (2)
  - Asthma [Unknown]
  - Drug ineffective [Not Recovered/Not Resolved]
